FAERS Safety Report 15317066 (Version 2)
Quarter: 2019Q1

REPORT INFORMATION
  Report Type: Spontaneous
  Country: US (occurrence: US)
  Receive Date: 20180824
  Receipt Date: 20190215
  Transmission Date: 20190417
  Serious: Yes (Other)
  Sender: FDA-Public Use
  Company Number: US-PFIZER INC-2018342899

PATIENT
  Age: 39 Year
  Sex: Female

DRUGS (6)
  1. LYRICA [Suspect]
     Active Substance: PREGABALIN
     Indication: BARRETT^S OESOPHAGUS
  2. LYRICA [Suspect]
     Active Substance: PREGABALIN
     Indication: PAIN
     Dosage: 75 MG, 1X/DAY (AT BEDTIME)
  3. LYRICA [Suspect]
     Active Substance: PREGABALIN
     Indication: SCOLIOSIS
  4. LYRICA [Suspect]
     Active Substance: PREGABALIN
     Indication: SCIATICA
  5. LYRICA [Suspect]
     Active Substance: PREGABALIN
     Indication: FIBROMYALGIA
     Dosage: 75 MG, 2X/DAY
  6. LYRICA [Suspect]
     Active Substance: PREGABALIN
     Indication: NEURALGIA

REACTIONS (5)
  - Product use issue [Unknown]
  - Inflammatory bowel disease [Unknown]
  - Sacroiliitis [Unknown]
  - Drug dependence [Unknown]
  - Drug ineffective [Unknown]
